FAERS Safety Report 4351576-4 (Version None)
Quarter: 2004Q2

REPORT INFORMATION
  Report Type: 
  Country: None (occurrence: None)
  Receive Date: 20040429
  Receipt Date: 20040224
  Transmission Date: 20050107
  Serious: No
  Sender: FDA-Public Use
  Company Number: 2004-114512-NL

PATIENT
  Sex: Female

DRUGS (4)
  1. NUVARING [Suspect]
     Dosage: DF DAILY
  2. MULTI-VITAMINS [Concomitant]
  3. TYLENOL (CAPLET) [Concomitant]
  4. ALEVE [Concomitant]

REACTIONS (2)
  - DEVICE FAILURE [None]
  - MEDICAL DEVICE DISCOMFORT [None]
